FAERS Safety Report 5051663-1 (Version None)
Quarter: 2006Q3

REPORT INFORMATION
  Report Type: 
  Country: None (occurrence: None)
  Receive Date: 20060711
  Receipt Date: 20060626
  Transmission Date: 20061208
  Serious: Yes (Other)
  Sender: FDA-Public Use
  Company Number: 200612700BCC

PATIENT
  Sex: Female
  Weight: 86.1834 kg

DRUGS (4)
  1. ALEVE (CAPLET) [Suspect]
     Indication: ARTHRALGIA
     Dosage: 220 MG, PRN, ORAL
     Route: 048
  2. ASPIRIN [Suspect]
     Indication: HEADACHE
     Dosage: PRN, ORAL
     Route: 048
  3. ASPIRIN [Suspect]
     Indication: PAIN
     Dosage: PRN, ORAL
     Route: 048
  4. METHOTREXATE [Concomitant]

REACTIONS (3)
  - EPISTAXIS [None]
  - GASTROOESOPHAGEAL REFLUX DISEASE [None]
  - OEDEMA PERIPHERAL [None]
